FAERS Safety Report 6788808-9 (Version None)
Quarter: 2010Q2

REPORT INFORMATION
  Report Type: 
  Country: None (occurrence: None)
  Receive Date: 20100623
  Receipt Date: 20080519
  Transmission Date: 20101027
  Serious: No
  Sender: FDA-Public Use
  Company Number: US-PFIZER INC-2008043021

PATIENT

DRUGS (1)
  1. XALATAN [Suspect]

REACTIONS (2)
  - DYSPNOEA [None]
  - INSOMNIA [None]
